FAERS Safety Report 15036621 (Version 1)
Quarter: 2018Q2

REPORT INFORMATION
  Report Type: Report from Study
  Country: IT (occurrence: IT)
  Receive Date: 20180620
  Receipt Date: 20180620
  Transmission Date: 20180711
  Serious: Yes (Hospitalization, Other)
  Sender: FDA-Public Use
  Company Number: IT-PFIZER INC-2018249617

PATIENT
  Age: 73 Year
  Sex: Female

DRUGS (6)
  1. VALDOXAN [Concomitant]
     Active Substance: AGOMELATINE
     Dosage: UNK
     Route: 048
  2. SULAMID [Concomitant]
     Active Substance: AMISULPRIDE
     Dosage: UNK
     Route: 048
  3. ZOLOFT [Suspect]
     Active Substance: SERTRALINE HYDROCHLORIDE
     Indication: DEPRESSION
     Dosage: 750 MG, TOTAL
     Route: 048
     Dates: start: 20160228, end: 20160228
  4. DELORAZEPAM [Concomitant]
     Active Substance: DELORAZEPAM
     Dosage: 1 MG, UNK
     Route: 048
  5. LAMICTAL [Concomitant]
     Active Substance: LAMOTRIGINE
     Dosage: UNK
     Route: 048
  6. NAPROXENE EG [Concomitant]
     Dosage: UNK
     Route: 048

REACTIONS (4)
  - Bradyphrenia [Recovered/Resolved]
  - Drug abuse [Unknown]
  - Intentional self-injury [Recovered/Resolved]
  - Overdose [Unknown]

NARRATIVE: CASE EVENT DATE: 20160228
